FAERS Safety Report 14629409 (Version 1)
Quarter: 2018Q1

REPORT INFORMATION
  Report Type: Spontaneous
  Country: US (occurrence: US)
  Receive Date: 20180313
  Receipt Date: 20180313
  Transmission Date: 20180509
  Serious: No
  Sender: FDA-Public Use
  Company Number: US-AUROBINDO-AUR-APL-2018-007750

PATIENT
  Age: 80 Year
  Sex: Male

DRUGS (1)
  1. OMEPRAZOLE DELAYED-RELEASE CAPSULES USP 40MG [Suspect]
     Active Substance: OMEPRAZOLE
     Indication: OESOPHAGEAL CARCINOMA
     Dosage: 40 UNK
     Route: 065
     Dates: start: 20180204

REACTIONS (1)
  - Hiccups [Recovered/Resolved]
